FAERS Safety Report 25751846 (Version 1)
Quarter: 2025Q3

REPORT INFORMATION
  Report Type: Other
  Country: AU (occurrence: AU)
  Receive Date: 20250902
  Receipt Date: 20250902
  Transmission Date: 20251020
  Serious: Yes (Other)
  Sender: BIOCON
  Company Number: AU-BIOCON BIOLOGICS LIMITED-BBL2025004725

PATIENT

DRUGS (1)
  1. ADALIMUMAB [Suspect]
     Active Substance: ADALIMUMAB
     Indication: Product used for unknown indication
     Route: 065

REACTIONS (6)
  - Uveitis [Unknown]
  - Interstitial lung disease [Unknown]
  - Sarcoidosis of lymph node [Unknown]
  - Abnormal loss of weight [Unknown]
  - Cardiac disorder [Unknown]
  - Hilar lymphadenopathy [Unknown]
